FAERS Safety Report 9006160 (Version 1)
Quarter: 2012Q4

REPORT INFORMATION
  Report Type: Spontaneous
  Country: US (occurrence: None)
  Receive Date: 20121226
  Receipt Date: 20121226
  Transmission Date: 20130627
  Serious: Yes (Death)
  Sender: FDA-Public Use
  Company Number: QSC-2012-0361

PATIENT
  Age: 59 Year
  Sex: Male

DRUGS (6)
  1. H.P. ACTHAR GEL (ADRENOCORTICOTROPIC HORMONE) GEL FOR INJECTION, 80U/ML [Suspect]
     Dosage: 80 units, unk, unknown
     Dates: start: 20121114, end: 20121120
  2. HYDRALAZINE [Concomitant]
  3. LANTUS (INSULIN GLARGINE) [Concomitant]
  4. PREDNISONE [Concomitant]
  5. ALDACTONE (SPIRONOLACTONE) [Concomitant]
  6. FUROSEMIDE [Concomitant]

REACTIONS (1)
  - Proteinuria [None]
